FAERS Safety Report 16641000 (Version 2)
Quarter: 2019Q3

REPORT INFORMATION
  Report Type: Spontaneous
  Country: PL (occurrence: PL)
  Receive Date: 20190729
  Receipt Date: 20190916
  Transmission Date: 20191004
  Serious: Yes (Hospitalization, Other)
  Sender: FDA-Public Use
  Company Number: PL-ROCHE-2357528

PATIENT
  Sex: Female
  Weight: 70 kg

DRUGS (5)
  1. ZELBORAF [Suspect]
     Active Substance: VEMURAFENIB
     Indication: METASTATIC MALIGNANT MELANOMA
     Route: 048
     Dates: start: 20190522, end: 20190602
  2. COTELLIC [Suspect]
     Active Substance: COBIMETINIB
     Indication: METASTATIC MALIGNANT MELANOMA
     Route: 048
     Dates: start: 20190522, end: 20190602
  3. LEVOTHYROXINE. [Concomitant]
     Active Substance: LEVOTHYROXINE
     Indication: HYPOTHYROIDISM
     Route: 048
     Dates: start: 20180603
  4. METOPROLOL. [Concomitant]
     Active Substance: METOPROLOL
     Indication: HYPERTENSION
     Route: 048
     Dates: start: 20180625
  5. POLPRAZOL [OMEPRAZOLE] [Concomitant]
     Active Substance: OMEPRAZOLE
     Indication: DYSPEPSIA
     Route: 048
     Dates: start: 20190416

REACTIONS (10)
  - Bronchial obstruction [Recovered/Resolved]
  - Blood creatine phosphokinase MB increased [Recovered/Resolved]
  - Stomatitis [Recovered/Resolved]
  - Genital tract inflammation [Recovered/Resolved]
  - Dyspnoea [Recovered/Resolved]
  - Supraventricular tachycardia [Recovered/Resolved]
  - Blood creatine phosphokinase increased [Recovered/Resolved]
  - Diarrhoea [Recovered/Resolved]
  - Rash macular [Recovered/Resolved]
  - Diabetes mellitus [Recovered/Resolved]

NARRATIVE: CASE EVENT DATE: 20190529
